FAERS Safety Report 7648770-3 (Version None)
Quarter: 2011Q3

REPORT INFORMATION
  Report Type: 
  Country: None (occurrence: None)
  Receive Date: 20110801
  Receipt Date: 20110726
  Transmission Date: 20111222
  Serious: Yes (Hospitalization, Other)
  Sender: FDA-Public Use
  Company Number: PHHO2011US12272

PATIENT
  Sex: Male
  Weight: 102 kg

DRUGS (8)
  1. PROGRAF [Suspect]
     Indication: RENAL TRANSPLANT
     Dosage: 2 MG, BID
     Route: 048
     Dates: start: 20110628
  2. IRON DEXTRAN [Concomitant]
     Dosage: 25 MG
     Route: 042
     Dates: start: 20110628
  3. CERTICAN [Suspect]
     Dosage: 0.75 MG, BID
     Route: 048
     Dates: start: 20110725
  4. PREDNISONE [Concomitant]
     Indication: RENAL TRANSPLANT
     Dosage: 15 MG, DAILY
     Route: 048
     Dates: start: 20110701, end: 20110713
  5. PREDNISONE [Concomitant]
     Dosage: 5 MG, DAILY
     Route: 048
     Dates: start: 20110714
  6. IRON DEXTRAN [Concomitant]
     Dosage: 1000 MG, UNK
     Route: 042
     Dates: start: 20110629
  7. CERTICAN [Suspect]
     Indication: RENAL TRANSPLANT
     Dosage: 1.5 MG, BID
     Route: 048
     Dates: start: 20110627, end: 20110724
  8. VALCYTE [Suspect]

REACTIONS (3)
  - CONCOMITANT DISEASE PROGRESSION [None]
  - GASTROINTESTINAL HAEMORRHAGE [None]
  - ANAEMIA POSTOPERATIVE [None]
